FAERS Safety Report 7409856 (Version 1)
Quarter: 2020Q3

REPORT INFORMATION
  Report Type: Spontaneous
  Country: DE (occurrence: DE)
  Receive Date: 20100604
  Receipt Date: 20100604
  Transmission Date: 20201105
  Serious: Yes (Hospitalization)
  Sender: FDA-Public Use
  Company Number: DE-ROCHE-705953

PATIENT
  Age: 77 Year
  Sex: Male
  Weight: 59.2 kg

DRUGS (15)
  1. MOVICOL [Concomitant]
     Active Substance: POLYETHYLENE GLYCOL 3350\POTASSIUM CHLORIDE\SODIUM BICARBONATE\SODIUM CHLORIDE
     Route: 048
     Dates: start: 20071006, end: 20071010
  2. IBANDRONIC ACID. [Suspect]
     Active Substance: IBANDRONIC ACID
     Indication: PRODUCT USED FOR UNKNOWN INDICATION
     Dosage: STRENGTH: 2 MG/2ML
     Route: 042
     Dates: start: 20071005, end: 20071005
  3. MOVICOL [Concomitant]
     Active Substance: POLYETHYLENE GLYCOL 3350\POTASSIUM CHLORIDE\SODIUM BICARBONATE\SODIUM CHLORIDE
     Route: 048
     Dates: start: 20071011, end: 20071017
  4. VITAMIN B12 [Concomitant]
     Active Substance: CYANOCOBALAMIN
     Dates: start: 20071004
  5. MORPHINE [Concomitant]
     Active Substance: MORPHINE
     Dosage: DOSE INCREASED
     Route: 048
     Dates: start: 20071007, end: 20071007
  6. FUROSEMIDE. [Concomitant]
     Active Substance: FUROSEMIDE
     Route: 048
     Dates: start: 20071007
  7. MORPHINE [Concomitant]
     Active Substance: MORPHINE
     Dosage: MST 10
     Route: 048
     Dates: end: 20071007
  8. NOVALGIN (DIPYRONE) [Concomitant]
     Active Substance: DIPYRONE
     Dosage: DRUG: NOVALGIN TROPFEN
     Route: 048
     Dates: end: 20071012
  9. PANTOZOL [Concomitant]
     Active Substance: PANTOPRAZOLE SODIUM
     Route: 048
     Dates: start: 20071007
  10. MORPHINE [Concomitant]
     Active Substance: MORPHINE
     Route: 048
     Dates: start: 20071008
  11. CALCIUM CARBONATE. [Concomitant]
     Active Substance: CALCIUM CARBONATE
     Route: 048
     Dates: start: 20071007
  12. ALDACTONE [Concomitant]
     Active Substance: SPIRONOLACTONE
     Route: 048
     Dates: start: 20071007, end: 20071007
  13. ISCADOR [Concomitant]
     Route: 058
     Dates: start: 20071010
  14. METOCLOPRAMIDE. [Concomitant]
     Active Substance: METOCLOPRAMIDE
     Dosage: 60 GTT DROPS EVERY DAY; DRUG: MCP BETA TROPFEN
     Route: 048
  15. NOVALGIN (DIPYRONE) [Concomitant]
     Active Substance: DIPYRONE
     Route: 048
     Dates: start: 20071015, end: 20071015

REACTIONS (2)
  - General physical health deterioration [Recovered/Resolved]
  - Pyrexia [Recovered/Resolved]

NARRATIVE: CASE EVENT DATE: 20071005
